FAERS Safety Report 22921498 (Version 2)
Quarter: 2024Q3

REPORT INFORMATION
  Report Type: Spontaneous
  Country: US (occurrence: None)
  Receive Date: 20230908
  Receipt Date: 20240906
  Transmission Date: 20241016
  Serious: No
  Sender: DOMPE FARMACEUTICI
  Company Number: US-FARMAPROD-202305-1585

PATIENT
  Age: 67 Year
  Sex: Female

DRUGS (21)
  1. OXERVATE [Suspect]
     Active Substance: CENEGERMIN-BKBJ
     Indication: Neurotrophic keratopathy
     Route: 047
     Dates: start: 20230525
  2. OXERVATE [Suspect]
     Active Substance: CENEGERMIN-BKBJ
  3. OXERVATE [Suspect]
     Active Substance: CENEGERMIN-BKBJ
  4. OXERVATE [Suspect]
     Active Substance: CENEGERMIN-BKBJ
  5. HAIR SKIN AND NAILS [Concomitant]
  6. OASIS TEARS [Concomitant]
     Active Substance: GLYCERIN
  7. REFRESH CLASSIC [Concomitant]
     Active Substance: POLYVINYL ALCOHOL\POVIDONE
     Dosage: LIQUID GEL
  8. MAGNESIUM [Concomitant]
     Active Substance: MAGNESIUM
  9. VITAMIN K [Concomitant]
     Active Substance: PHYTONADIONE
  10. COENZYME Q10 [Concomitant]
     Active Substance: DIETARY SUPPLEMENT\UBIDECARENONE
  11. VITAMIN B12 [Concomitant]
     Active Substance: CYANOCOBALAMIN
  12. VITAMIN D3 [Concomitant]
     Active Substance: CHOLECALCIFEROL
  13. CEVIMELINE HYDROCHLORIDE [Concomitant]
     Active Substance: CEVIMELINE HYDROCHLORIDE
  14. ASPIRIN [Concomitant]
     Active Substance: ASPIRIN
  15. METOPROLOL SUCCINATE [Concomitant]
     Active Substance: METOPROLOL SUCCINATE
  16. LOSARTAN POTASSIUM [Concomitant]
     Active Substance: LOSARTAN POTASSIUM
  17. OMEGA-3 VITAMIN D [Concomitant]
     Dosage: 150-500 MG
  18. IMIPRAMINE HYDROCHLORIDE [Concomitant]
     Active Substance: IMIPRAMINE HYDROCHLORIDE
  19. ARMOUR THYROID [Concomitant]
     Active Substance: THYROID, PORCINE
  20. REPATHA [Concomitant]
     Active Substance: EVOLOCUMAB
  21. OASIS TEARS [Concomitant]
     Active Substance: GLYCERIN

REACTIONS (16)
  - Eye pain [Recovered/Resolved]
  - Eyelid pain [Not Recovered/Not Resolved]
  - Rhinorrhoea [Unknown]
  - Eye pruritus [Unknown]
  - Eye irritation [Recovered/Resolved]
  - Periorbital pain [Unknown]
  - Ocular discomfort [Unknown]
  - Product dose omission issue [Unknown]
  - Photophobia [Recovered/Resolved]
  - Eyelid irritation [Not Recovered/Not Resolved]
  - Eyelid irritation [Not Recovered/Not Resolved]
  - Ocular hyperaemia [Unknown]
  - Lacrimation decreased [Unknown]
  - Intentional product misuse [Unknown]
  - Product use issue [Unknown]
  - Drug ineffective [Unknown]

NARRATIVE: CASE EVENT DATE: 20230525
